FAERS Safety Report 20820253 (Version 1)
Quarter: 2022Q2

REPORT INFORMATION
  Report Type: Spontaneous
  Country: US (occurrence: US)
  Receive Date: 20220512
  Receipt Date: 20220512
  Transmission Date: 20220720
  Serious: No
  Sender: FDA-Public Use
  Company Number: US-BAYER-2022A063438

PATIENT
  Age: 62 Year
  Sex: Female

DRUGS (5)
  1. CLARITIN [Suspect]
     Active Substance: LORATADINE
     Indication: Pain
  2. REMODULIN [Concomitant]
     Active Substance: TREPROSTINIL
     Indication: Pain
     Dosage: UNK
     Dates: start: 20160622
  3. LETAIRIS [Concomitant]
     Active Substance: AMBRISENTAN
  4. PEPCID [Concomitant]
     Active Substance: FAMOTIDINE
     Indication: Pain
  5. TRAMADOL [Concomitant]
     Active Substance: TRAMADOL
     Indication: Pain

REACTIONS (1)
  - Nausea [Unknown]
